FAERS Safety Report 8827248 (Version 4)
Quarter: 2013Q1

REPORT INFORMATION
  Report Type: Spontaneous
  Country: PL (occurrence: PL)
  Receive Date: 20121008
  Receipt Date: 20130117
  Transmission Date: 20140127
  Serious: Yes (Hospitalization, Other)
  Sender: FDA-Public Use
  Company Number: PL-AMGEN-POLSP2012062250

PATIENT
  Age: 62 Year
  Sex: Male
  Weight: 89 kg

DRUGS (5)
  1. ARANESP [Suspect]
     Indication: PRODUCT USED FOR UNKNOWN INDICATION
     Dosage: 60 MUG, QWK
     Route: 042
     Dates: start: 200907
  2. ACIDUM FOLICUM [Concomitant]
     Indication: ANAEMIA
     Dosage: 15 MG, QD
     Route: 048
     Dates: start: 201008
  3. VIT B6 [Concomitant]
     Indication: ANAEMIA
     Dosage: 50 MUG, QID
     Route: 048
     Dates: start: 20111008
  4. FUROSEMID                          /00032601/ [Concomitant]
     Indication: RENAL FAILURE CHRONIC
     Dosage: 40 MUG, QD
     Route: 048
     Dates: start: 2006
  5. ALFADIOL [Concomitant]
     Indication: RENAL FAILURE CHRONIC
     Dosage: 0.25 MUG, BID
     Route: 048
     Dates: start: 2006

REACTIONS (5)
  - Aplasia pure red cell [Unknown]
  - Anaemia [Not Recovered/Not Resolved]
  - Kidney infection [Unknown]
  - Hydronephrosis [Unknown]
  - Renal failure chronic [Unknown]
